FAERS Safety Report 4377415-3 (Version None)
Quarter: 2004Q2

REPORT INFORMATION
  Report Type: 
  Country: None (occurrence: None)
  Receive Date: 20040609
  Receipt Date: 20040424
  Transmission Date: 20050107
  Serious: No
  Sender: FDA-Public Use
  Company Number: 2004211023US

PATIENT
  Sex: Female
  Weight: 56.7 kg

DRUGS (6)
  1. BEXTRA [Suspect]
     Indication: ARTHRITIS
     Dosage: 40 MG, QD, ORAL
     Route: 048
     Dates: start: 20030101
  2. ACCUPRIL [Concomitant]
  3. ACTONEL [Concomitant]
  4. NEURONTIN [Concomitant]
  5. TYLENOL [Concomitant]
  6. VITAMINS NOS (VITAMINS NOS) [Concomitant]

REACTIONS (2)
  - COELIAC DISEASE [None]
  - DIARRHOEA [None]
